FAERS Safety Report 6805263-0 (Version None)
Quarter: 2010Q2

REPORT INFORMATION
  Report Type: 
  Country: None (occurrence: None)
  Receive Date: 20100628
  Receipt Date: 20071009
  Transmission Date: 20101027
  Serious: Yes (Hospitalization, Other)
  Sender: FDA-Public Use
  Company Number: US-PFIZER INC-2007085700

PATIENT
  Age: 20 Year
  Sex: Male

DRUGS (3)
  1. GEODON [Suspect]
  2. EFFEXOR [Suspect]
  3. PAXIL [Suspect]

REACTIONS (1)
  - DYSTONIA [None]
